FAERS Safety Report 4915958-1 (Version None)
Quarter: 2006Q1

REPORT INFORMATION
  Report Type: 
  Country: None (occurrence: None)
  Receive Date: 20060214
  Receipt Date: 20060125
  Transmission Date: 20060701
  Serious: Yes (Hospitalization, Other)
  Sender: FDA-Public Use
  Company Number: US200601004551

PATIENT
  Age: 71 Year
  Sex: Female

DRUGS (14)
  1. FORTEO [Suspect]
     Indication: OSTEOPOROSIS
     Dates: start: 20060104, end: 20060123
  2. FORTEO PEN (250MCG/ML) (FORTEO PNE 250MCG/ML (3ML)) [Concomitant]
  3. PEN, DISPOSABLE [Concomitant]
  4. DUROGESIC/DEN/(FENTANYL) [Concomitant]
  5. AMBIEN [Concomitant]
  6. ZANAFLEX [Concomitant]
  7. LIPODERM OMEGA (OMEGA-3 TRIGLYCERIDES) [Concomitant]
  8. COLACE (DOCUSATE SODIUM) [Concomitant]
  9. ULTRAM (TRAMADOL HYDROCHLOEIDE) [Concomitant]
  10. DARVOCET-N (DEXTROPROOPXYPHENE NAPSILATE, PARACETAMOL) [Concomitant]
  11. CARAFATE   /USA/ (SUCRALFATE) [Concomitant]
  12. VITAMINS  WITH MINERALS [Concomitant]
  13. CALCIUM CARBONATE (CALCIUM CARBONATE) [Concomitant]
  14. PROTONIX [Concomitant]

REACTIONS (6)
  - DIFFICULTY IN WALKING [None]
  - DYSPNOEA [None]
  - PHARMACEUTICAL PRODUCT COMPLAINT [None]
  - PULMONARY THROMBOSIS [None]
  - SOMNOLENCE [None]
  - TONGUE DISORDER [None]
